FAERS Safety Report 18382151 (Version 1)
Quarter: 2020Q4

REPORT INFORMATION
  Report Type: Spontaneous
  Country: US (occurrence: US)
  Receive Date: 20201013
  Receipt Date: 20201013
  Transmission Date: 20210114
  Serious: Yes (Disabling, Other)
  Sender: FDA-Public Use
  Company Number: None

PATIENT
  Age: 72 Year
  Sex: Female

DRUGS (1)
  1. RHOPRESSA [Suspect]
     Active Substance: NETARSUDIL MESYLATE

REACTIONS (1)
  - Vision blurred [None]

NARRATIVE: CASE EVENT DATE: 20201009
